FAERS Safety Report 6343482-0 (Version None)
Quarter: 2009Q3

REPORT INFORMATION
  Report Type: 
  Country: None (occurrence: None)
  Receive Date: 20090904
  Receipt Date: 20090904
  Transmission Date: 20100115
  Serious: Yes (Other)
  Sender: FDA-Public Use
  Company Number: None

PATIENT
  Sex: Male
  Weight: 71.2147 kg

DRUGS (1)
  1. ZOLPIDEM [Suspect]
     Indication: BIPOLAR DISORDER
     Dosage: 10MG
     Dates: start: 20090818, end: 20090819

REACTIONS (1)
  - AGITATION [None]
